FAERS Safety Report 14186843 (Version 1)
Quarter: 2017Q4

REPORT INFORMATION
  Report Type: Report from Study
  Country: IT (occurrence: IT)
  Receive Date: 20171114
  Receipt Date: 20171114
  Transmission Date: 20180321
  Serious: Yes (Hospitalization, Other)
  Sender: FDA-Public Use
  Company Number: IT-MYLANLABS-2017M1071105

PATIENT
  Age: 42 Year
  Sex: Male

DRUGS (3)
  1. FLUMAZENIL. [Suspect]
     Active Substance: FLUMAZENIL
     Indication: PRODUCT USED FOR UNKNOWN INDICATION
     Dosage: 40.5 MICROG/HOUR FOR 24 HOURS/DAY FOR 7 DAYS
     Route: 058
  2. DIAZEPAM. [Suspect]
     Active Substance: DIAZEPAM
     Indication: PRODUCT USED FOR UNKNOWN INDICATION
     Dosage: 250MG
     Route: 065
  3. VALPROATE [Concomitant]
     Active Substance: VALPROIC ACID
     Indication: CONVULSION PROPHYLAXIS
     Dosage: 1500MG
     Route: 065

REACTIONS (4)
  - Intentional overdose [Recovered/Resolved]
  - Seizure [Unknown]
  - Drug dependence [Recovered/Resolved]
  - Intentional product misuse [Recovered/Resolved]
